FAERS Safety Report 8164761 (Version 2)
Quarter: 2012Q4

REPORT INFORMATION
  Report Type: 
  Country: US (occurrence: US)
  Receive Date: 20110930
  Receipt Date: 20121204
  Transmission Date: 20130627
  Serious: Yes (Hospitalization, Other)
  Sender: FDA-Public Use
  Company Number: US-ASTRAZENECA-2010SE53152

PATIENT
  Age: 83 Year
  Sex: Female

DRUGS (5)
  1. NEXIUM [Suspect]
     Indication: GASTROOESOPHAGEAL REFLUX DISEASE
     Route: 048
     Dates: start: 200911
  2. TOPROL XL [Suspect]
     Indication: HYPERTENSION
     Route: 048
     Dates: start: 2008
  3. TOPROL XL [Suspect]
     Indication: CORONARY ARTERY DISEASE
     Route: 048
     Dates: start: 2008
  4. CRESTOR [Suspect]
     Indication: HYPERLIPIDAEMIA
     Route: 048
     Dates: start: 2009
  5. PREVACID [Concomitant]

REACTIONS (7)
  - Colon adenoma [Unknown]
  - Large intestine polyp [Unknown]
  - Rectal polyp [Unknown]
  - Colon cancer [Unknown]
  - Activities of daily living impaired [Unknown]
  - Intentional drug misuse [Unknown]
  - Drug dose omission [Unknown]
